FAERS Safety Report 7433006-9 (Version None)
Quarter: 2011Q2

REPORT INFORMATION
  Report Type: 
  Country: None (occurrence: None)
  Receive Date: 20110422
  Receipt Date: 20110413
  Transmission Date: 20111010
  Serious: No
  Sender: FDA-Public Use
  Company Number: US-B.I. PHARMACEUTICALS,INC./RIDGEFIELD-2010-BP-15142BP

PATIENT
  Sex: Female
  Weight: 70.76 kg

DRUGS (2)
  1. PRADAXA [Suspect]
     Indication: ATRIAL FIBRILLATION
     Dosage: 300 MG
     Route: 048
     Dates: start: 20101210
  2. PRADAXA [Suspect]
     Indication: ANTICOAGULANT THERAPY

REACTIONS (4)
  - CHEST DISCOMFORT [None]
  - ABDOMINAL DISCOMFORT [None]
  - GASTRITIS [None]
  - OESOPHAGITIS [None]
